FAERS Safety Report 5667943-2 (Version None)
Quarter: 2008Q1

REPORT INFORMATION
  Report Type: 
  Country: None (occurrence: None)
  Receive Date: 20080315
  Receipt Date: 20080207
  Transmission Date: 20080703
  Serious: No
  Sender: FDA-Public Use
  Company Number: US-ABBOTT-08P-163-0437606-00

PATIENT
  Sex: Male
  Weight: 100 kg

DRUGS (8)
  1. HUMIRA [Suspect]
     Indication: PSORIASIS
     Route: 058
     Dates: start: 20060101, end: 20070701
  2. HUMIRA [Suspect]
     Indication: PSORIATIC ARTHROPATHY
     Route: 058
     Dates: start: 20070701
  3. NOVOLOG [Concomitant]
     Indication: DIABETES MELLITUS
     Route: 058
     Dates: start: 20071001
  4. LEVEMIR [Concomitant]
     Indication: DIABETES MELLITUS
     Route: 058
     Dates: start: 20070901
  5. METFORMIN [Concomitant]
     Indication: DIABETES MELLITUS
     Route: 048
     Dates: start: 20071001
  6. CITALOPRAM HYDROBROMIDE [Concomitant]
     Indication: DEPRESSION
     Route: 048
     Dates: start: 20070101
  7. BUPROPION HCL [Concomitant]
     Indication: DEPRESSION
     Route: 048
     Dates: start: 20070601
  8. ZOLPIDEM TARTRATE [Concomitant]
     Indication: INSOMNIA
     Route: 048
     Dates: start: 20070901

REACTIONS (2)
  - DRUG INEFFECTIVE [None]
  - INJECTION SITE PAIN [None]
